FAERS Safety Report 5654487-7 (Version None)
Quarter: 2008Q1

REPORT INFORMATION
  Report Type: 
  Country: None (occurrence: None)
  Receive Date: 20080205
  Receipt Date: 20070302
  Transmission Date: 20080703
  Serious: Yes (Hospitalization)
  Sender: FDA-Public Use
  Company Number: MEDI-0005441

PATIENT
  Age: 51 Year
  Sex: Female

DRUGS (21)
  1. ETHYOL [Suspect]
     Indication: RADIOTHERAPY
     Dosage: 500 MG, 5 IN 5 D, SUBCUTANEOUS; 440 MG, INTRAVENOUS (NOT OTHERWISE SPECIFIED)
     Route: 058
     Dates: start: 20061004, end: 20070202
  2. ETHYOL [Suspect]
     Indication: RADIOTHERAPY
     Dosage: 500 MG, 5 IN 5 D, SUBCUTANEOUS; 440 MG, INTRAVENOUS (NOT OTHERWISE SPECIFIED)
     Route: 058
     Dates: start: 20070202, end: 20070208
  3. EXTERNAL BEAM RADIATION THERAPY [Concomitant]
  4. XELODA [Concomitant]
  5. BACLOFEN [Concomitant]
  6. DECADRON [Concomitant]
  7. ZYRTEC [Concomitant]
  8. COMPAZINE [Concomitant]
  9. DILAUDID [Concomitant]
  10. MEGACE [Concomitant]
  11. OXYCODONE HCL (OXYCODONE HYDROCHLORIDE) [Concomitant]
  12. AMITIZA [Concomitant]
  13. B COMPLEX (PYRIDOXINE HYDROCHLORIDE, THIAMINE HYDROCHLORIDE, RIBOFLAVI [Concomitant]
  14. MEGACE [Concomitant]
  15. OXYCONTIN [Concomitant]
  16. SYNTHROID [Concomitant]
  17. DYRENIUM (TRIAMTERENE) [Concomitant]
  18. LIDOCAINE-PRILOCAINE (LIDOCAINE, PRILOCAINE) [Concomitant]
  19. LIDODERM [Concomitant]
  20. CETUXIMAB (CETUXIMAB) [Concomitant]
  21. GREEN TEA (CAMELLIA SINENSIS) [Concomitant]

REACTIONS (8)
  - CANDIDIASIS [None]
  - HAEMATURIA [None]
  - HEADACHE [None]
  - OEDEMA [None]
  - PAIN [None]
  - PYREXIA [None]
  - RASH ERYTHEMATOUS [None]
  - RASH PAPULAR [None]
